FAERS Safety Report 23856775 (Version 3)
Quarter: 2025Q2

REPORT INFORMATION
  Report Type: Spontaneous
  Country: US (occurrence: US)
  Receive Date: 20240515
  Receipt Date: 20250608
  Transmission Date: 20250717
  Serious: No
  Sender: COHERUS
  Company Number: US-Coherus Biosciences Inc, 2024-COH-US000251

PATIENT

DRUGS (12)
  1. UDENYCA [Suspect]
     Active Substance: PEGFILGRASTIM-CBQV
     Indication: Prophylaxis
     Route: 058
     Dates: start: 20240412
  2. COREG [Concomitant]
     Active Substance: CARVEDILOL
  3. DECADRON [Concomitant]
     Active Substance: DEXAMETHASONE
  4. FOLIC ACID [Concomitant]
     Active Substance: FOLIC ACID
  5. LASIX [Concomitant]
     Active Substance: FUROSEMIDE
  6. MAGNESIUM [Concomitant]
     Active Substance: MAGNESIUM
  7. NIFEDIPINE [Concomitant]
     Active Substance: NIFEDIPINE
  8. ZOFRAN [Concomitant]
     Active Substance: ONDANSETRON HYDROCHLORIDE
  9. POTASSIUM CHLORIDE [Concomitant]
     Active Substance: POTASSIUM CHLORIDE
  10. TOLVAPTAN [Concomitant]
     Active Substance: TOLVAPTAN
  11. VALTREX [Concomitant]
     Active Substance: VALACYCLOVIR HYDROCHLORIDE
  12. LURBINECTEDIN [Concomitant]
     Active Substance: LURBINECTEDIN

REACTIONS (2)
  - Device malfunction [Unknown]
  - No adverse event [Unknown]

NARRATIVE: CASE EVENT DATE: 20240412
